FAERS Safety Report 4425713-7 (Version None)
Quarter: 2004Q3

REPORT INFORMATION
  Report Type: 
  Country: None (occurrence: None)
  Receive Date: 20040716
  Receipt Date: 20040329
  Transmission Date: 20050211
  Serious: No
  Sender: FDA-Public Use
  Company Number: 2004-03-1132

PATIENT
  Sex: Female

DRUGS (1)
  1. CLARINEX [Suspect]
     Indication: HYPERSENSITIVITY
     Dosage: 5 MG QD ORAL
     Route: 048
     Dates: start: 20040312, end: 20040312

REACTIONS (3)
  - DIZZINESS [None]
  - DYSGEUSIA [None]
  - MALAISE [None]
